FAERS Safety Report 18166428 (Version 1)
Quarter: 2020Q3

REPORT INFORMATION
  Report Type: Spontaneous
  Country: IR (occurrence: IR)
  Receive Date: 20200819
  Receipt Date: 20200819
  Transmission Date: 20201103
  Serious: Yes (Hospitalization, Other)
  Sender: FDA-Public Use
  Company Number: IR-VISTAPHARM, INC.-VER202008-001385

PATIENT
  Age: 15 Year
  Sex: Male

DRUGS (6)
  1. PHENYTOIN. [Concomitant]
     Active Substance: PHENYTOIN
     Indication: GENERALISED TONIC-CLONIC SEIZURE
     Dosage: UNKNOWN
  2. PREDNISOLONE. [Suspect]
     Active Substance: PREDNISOLONE
     Indication: CONNECTIVE TISSUE DISORDER
     Dosage: 70 MG DAILY
  3. CYCLOPHOSPHAMIDE. [Suspect]
     Active Substance: CYCLOPHOSPHAMIDE
     Dosage: 500 MG (SECOND PULSE THERAPY)
  4. METHYLPREDNISOLONE. [Concomitant]
     Active Substance: METHYLPREDNISOLONE
     Indication: CONNECTIVE TISSUE DISORDER
     Dosage: 1 G
     Route: 042
  5. HYDROXYCHOLOROQUINE SULPHATE?BP [Suspect]
     Active Substance: HYDROXYCHLOROQUINE SULFATE
     Indication: CONNECTIVE TISSUE DISORDER
     Dosage: 200 MG DAILY
  6. CYCLOPHOSPHAMIDE. [Suspect]
     Active Substance: CYCLOPHOSPHAMIDE
     Indication: CONNECTIVE TISSUE DISORDER
     Dosage: 500 MG (PULSE THERAPY)

REACTIONS (1)
  - Posterior reversible encephalopathy syndrome [Unknown]
